FAERS Safety Report 7250976-2 (Version None)
Quarter: 2011Q1

REPORT INFORMATION
  Report Type: 
  Country: None (occurrence: None)
  Receive Date: 20110128
  Receipt Date: 20110121
  Transmission Date: 20110831
  Serious: Yes (Hospitalization)
  Sender: FDA-Public Use
  Company Number: A0909980A

PATIENT
  Age: 41 Year
  Sex: Female
  Weight: 91 kg

DRUGS (15)
  1. NEURONTIN [Concomitant]
  2. WARFARIN [Concomitant]
  3. LASIX [Concomitant]
  4. MULTI-VITAMIN [Concomitant]
  5. OXYGEN [Concomitant]
  6. METFORMIN HCL [Concomitant]
  7. REVATIO [Concomitant]
  8. SPIRONOLACTONE [Concomitant]
  9. CELEXA [Concomitant]
  10. METOLAZONE [Concomitant]
  11. SPIRIVA [Concomitant]
  12. DIGOXIN [Concomitant]
  13. POTASSIUM CL [Concomitant]
  14. FLOLAN [Suspect]
     Dosage: 50NGKM CONTINUOUS
     Dates: start: 20061023
  15. TRACLEER [Concomitant]

REACTIONS (2)
  - DIABETES MELLITUS [None]
  - PNEUMONIA [None]
